FAERS Safety Report 5360340-9 (Version None)
Quarter: 2007Q2

REPORT INFORMATION
  Report Type: 
  Country: None (occurrence: None)
  Receive Date: 20070612
  Receipt Date: 20070605
  Transmission Date: 20071010
  Serious: Yes (Hospitalization)
  Sender: FDA-Public Use
  Company Number: 2007BI004037

PATIENT
  Age: 44 Year
  Sex: Female

DRUGS (2)
  1. NATALIZUMAB [Suspect]
     Indication: MULTIPLE SCLEROSIS
     Dosage: 300 MG; QM; IV
     Route: 042
     Dates: start: 20050114
  2. NATALIZUMAB [Suspect]
     Indication: MULTIPLE SCLEROSIS
     Dosage: 300 MG; QM; IV
     Route: 042
     Dates: start: 20061011, end: 20070206

REACTIONS (6)
  - BLOOD IMMUNOGLOBULIN G DECREASED [None]
  - CONDITION AGGRAVATED [None]
  - IMMUNE SYSTEM DISORDER [None]
  - MULTIPLE SCLEROSIS [None]
  - SINUSITIS [None]
  - VERTIGO [None]
